FAERS Safety Report 7061439-1 (Version None)
Quarter: 2010Q4

REPORT INFORMATION
  Report Type: 
  Country: None (occurrence: None)
  Receive Date: 20101026
  Receipt Date: 20101014
  Transmission Date: 20110411
  Serious: Yes (Hospitalization)
  Sender: FDA-Public Use
  Company Number: BR-MEDIMMUNE-MEDI-0011653

PATIENT
  Sex: Male
  Weight: 6.7 kg

DRUGS (5)
  1. SYNAGIS [Suspect]
     Dosage: ACCORDING TO PATIENT'S WEIGHT
     Route: 030
     Dates: start: 20100524, end: 20100524
  2. SYNAGIS [Suspect]
     Indication: BRONCHOPULMONARY DYSPLASIA
     Dosage: ACCORDING TO PATIENT'S WEIGHT
     Route: 030
     Dates: start: 20100601, end: 20100901
  3. PROTOVIT [Concomitant]
     Route: 048
  4. FERRO-FOLSAN [Concomitant]
     Route: 048
     Dates: start: 20100501
  5. FOLIC ACID [Concomitant]
     Dosage: 6 DROPS A DAY
     Route: 048

REACTIONS (9)
  - ALLERGIC OEDEMA [None]
  - BRONCHIOLITIS [None]
  - BRONCHITIS [None]
  - DYSPNOEA [None]
  - FATIGUE [None]
  - INFLUENZA [None]
  - NAUSEA [None]
  - PYREXIA [None]
  - SKIN EXFOLIATION [None]
